FAERS Safety Report 24707324 (Version 1)
Quarter: 2024Q4

REPORT INFORMATION
  Report Type: Spontaneous
  Country: US (occurrence: None)
  Receive Date: 20241206
  Receipt Date: 20241206
  Transmission Date: 20250115
  Serious: Yes (Hospitalization)
  Sender: Public
  Company Number: None

PATIENT
  Age: 10 Year
  Sex: Male

DRUGS (1)
  1. NOVOSEVEN RT [Suspect]
     Active Substance: COAGULATION FACTOR VIIA RECOMBINANT HUMAN
     Indication: Platelet disorder
     Dosage: OTHER FREQUENCY : ONCE DAILY AS NEEDED;?OTHER ROUTE : IV;?
     Route: 050
     Dates: start: 202104

REACTIONS (1)
  - Epistaxis [None]

NARRATIVE: CASE EVENT DATE: 20241129
